FAERS Safety Report 19861052 (Version 2)
Quarter: 2021Q4

REPORT INFORMATION
  Report Type: Spontaneous
  Country: DE (occurrence: DE)
  Receive Date: 20210920
  Receipt Date: 20211001
  Transmission Date: 20220303
  Serious: Yes (Hospitalization)
  Sender: FDA-Public Use
  Company Number: DE-ADRED-07221-01

PATIENT
  Age: 44 Year
  Sex: Female
  Weight: 55 kg

DRUGS (3)
  1. PANTOPRAZOLE [Suspect]
     Active Substance: PANTOPRAZOLE
     Dosage: 40 MG, 1X/DAY
     Route: 065
  2. BISOPROLOL [Concomitant]
     Active Substance: BISOPROLOL
     Dosage: 5 MG, 2X/DAY
     Route: 065
  3. CANDESARTAN [Concomitant]
     Active Substance: CANDESARTAN
     Dosage: 16 MG, 2X/DAY
     Route: 065

REACTIONS (14)
  - Nocturia [Unknown]
  - Systemic infection [Unknown]
  - Musculoskeletal pain [Unknown]
  - Hypocalcaemia [Unknown]
  - Renal impairment [Unknown]
  - General physical health deterioration [Unknown]
  - Weight decreased [Unknown]
  - Diarrhoea [Unknown]
  - Hypomagnesaemia [Unknown]
  - Muscle spasms [Unknown]
  - Hyponatraemia [Unknown]
  - Nausea [Unknown]
  - Vomiting [Unknown]
  - Constipation [Unknown]
